FAERS Safety Report 25237075 (Version 1)
Quarter: 2025Q2

REPORT INFORMATION
  Report Type: Report from Study
  Country: US (occurrence: US)
  Receive Date: 20250425
  Receipt Date: 20250425
  Transmission Date: 20250716
  Serious: Yes (Other)
  Sender: ABBVIE
  Company Number: US-ABBVIE-6235280

PATIENT
  Age: 87 Year
  Sex: Female

DRUGS (1)
  1. RINVOQ [Suspect]
     Active Substance: UPADACITINIB
     Indication: Colitis ulcerative
     Route: 048
     Dates: start: 20250214

REACTIONS (4)
  - Visual impairment [Recovering/Resolving]
  - Dyschezia [Recovering/Resolving]
  - Pollakiuria [Recovering/Resolving]
  - Auditory disorder [Recovering/Resolving]

NARRATIVE: CASE EVENT DATE: 20250101
